FAERS Safety Report 24722243 (Version 1)
Quarter: 2024Q4

REPORT INFORMATION
  Report Type: Spontaneous
  Country: JP (occurrence: JP)
  Receive Date: 20241211
  Receipt Date: 20241211
  Transmission Date: 20250115
  Serious: Yes (Hospitalization)
  Sender: AKEBIA THERAPEUTICS
  Company Number: JP-IQVIA-JT2023JP000152

PATIENT
  Age: 37 Year
  Sex: Female
  Weight: 35.4 kg

DRUGS (45)
  1. FERRIC CITRATE ANHYDROUS [Suspect]
     Active Substance: FERRIC CITRATE ANHYDROUS
     Indication: Hyperphosphataemia
     Dosage: 1000 MILLIGRAM, TID
     Route: 048
  2. ENARODUSTAT [Suspect]
     Active Substance: ENARODUSTAT
     Indication: Nephrogenic anaemia
     Dosage: 4 MILLIGRAM, QD
     Route: 048
     Dates: start: 20221028
  3. ENARODUSTAT [Suspect]
     Active Substance: ENARODUSTAT
     Dosage: 2 MILLIGRAM, QD
     Route: 048
     Dates: start: 20221118
  4. ENARODUSTAT [Suspect]
     Active Substance: ENARODUSTAT
     Dosage: 1 MILLIGRAM, QD
     Route: 048
     Dates: start: 20221216
  5. ENARODUSTAT [Suspect]
     Active Substance: ENARODUSTAT
     Dosage: 2 MILLIGRAM, QD
     Route: 048
     Dates: start: 20230113
  6. ENARODUSTAT [Suspect]
     Active Substance: ENARODUSTAT
     Dosage: 4 MILLIGRAM, QD
     Route: 048
     Dates: start: 20230127
  7. ENARODUSTAT [Suspect]
     Active Substance: ENARODUSTAT
     Dosage: 6 MILLIGRAM, QD
     Route: 048
     Dates: start: 20230218
  8. ENARODUSTAT [Suspect]
     Active Substance: ENARODUSTAT
     Dosage: 4 MILLIGRAM, QD
     Route: 048
     Dates: start: 20230401
  9. ENARODUSTAT [Suspect]
     Active Substance: ENARODUSTAT
     Dosage: 2 MILLIGRAM, QD
     Route: 048
     Dates: start: 20230415
  10. ENARODUSTAT [Suspect]
     Active Substance: ENARODUSTAT
     Dosage: 1 MILLIGRAM, QD
     Route: 048
     Dates: start: 20230513
  11. ENARODUSTAT [Suspect]
     Active Substance: ENARODUSTAT
     Dosage: 2 MILLIGRAM, QD
     Route: 048
     Dates: start: 20230617
  12. ENARODUSTAT [Suspect]
     Active Substance: ENARODUSTAT
     Dosage: 4 MILLIGRAM, QD
     Route: 048
     Dates: start: 20230729
  13. ENARODUSTAT [Suspect]
     Active Substance: ENARODUSTAT
     Dosage: 2 MILLIGRAM, QD
     Route: 048
     Dates: start: 20230902
  14. ENARODUSTAT [Suspect]
     Active Substance: ENARODUSTAT
     Dosage: 1 MILLIGRAM, QD
     Route: 048
     Dates: start: 20230916
  15. ENARODUSTAT [Suspect]
     Active Substance: ENARODUSTAT
     Dosage: 2 MILLIGRAM, QD
     Route: 048
     Dates: start: 20230930
  16. ENARODUSTAT [Suspect]
     Active Substance: ENARODUSTAT
     Dosage: 1.4 MILLIGRAM, QD
     Route: 048
     Dates: start: 20231014
  17. ENARODUSTAT [Suspect]
     Active Substance: ENARODUSTAT
     Dosage: 2 MILLIGRAM, QD
     Route: 048
     Dates: start: 20231110
  18. ENARODUSTAT [Suspect]
     Active Substance: ENARODUSTAT
     Dosage: 4 MILLIGRAM, QD
     Route: 048
     Dates: start: 20231215
  19. ENARODUSTAT [Suspect]
     Active Substance: ENARODUSTAT
     Dosage: 2 MILLIGRAM, QD
     Route: 048
     Dates: start: 20240112
  20. ENARODUSTAT [Suspect]
     Active Substance: ENARODUSTAT
     Dosage: 1 MILLIGRAM, QD
     Route: 048
     Dates: start: 20240216
  21. ENARODUSTAT [Suspect]
     Active Substance: ENARODUSTAT
     Dosage: 2 MILLIGRAM, QD
     Route: 048
     Dates: start: 20240301
  22. ENARODUSTAT [Suspect]
     Active Substance: ENARODUSTAT
     Dosage: 4 MILLIGRAM, QD
     Route: 048
     Dates: start: 20240412
  23. ENARODUSTAT [Suspect]
     Active Substance: ENARODUSTAT
     Dosage: 3 MILLIGRAM, QD
     Route: 048
     Dates: start: 20240517
  24. ENARODUSTAT [Suspect]
     Active Substance: ENARODUSTAT
     Dosage: 2 MILLIGRAM, QD
     Route: 048
     Dates: start: 20240531
  25. ENARODUSTAT [Suspect]
     Active Substance: ENARODUSTAT
     Dosage: 1 MILLIGRAM, QD
     Route: 048
     Dates: start: 20240726
  26. ENARODUSTAT [Suspect]
     Active Substance: ENARODUSTAT
     Dosage: 2 MILLIGRAM, QD
     Route: 048
     Dates: start: 20240809
  27. ENARODUSTAT [Suspect]
     Active Substance: ENARODUSTAT
     Dosage: 4 MILLIGRAM, QD
     Route: 048
     Dates: start: 20240830
  28. ENARODUSTAT [Suspect]
     Active Substance: ENARODUSTAT
     Dosage: 2 MILLIGRAM, QD
     Route: 048
     Dates: start: 20240927
  29. ENARODUSTAT [Suspect]
     Active Substance: ENARODUSTAT
     Dosage: 1 MILLIGRAM, QD
     Route: 048
     Dates: start: 20241018
  30. VONOPRAZAN FUMARATE [Concomitant]
     Active Substance: VONOPRAZAN FUMARATE
     Indication: Gastrooesophageal reflux disease
     Dosage: 20 MILLIGRAM, QD
     Route: 048
  31. EZETIMIBE [Concomitant]
     Active Substance: EZETIMIBE
     Indication: Dyslipidaemia
     Dosage: 10 MILLIGRAM, QD
     Route: 048
  32. ALFACALCIDOL [Concomitant]
     Active Substance: ALFACALCIDOL
     Indication: Glomerulonephritis chronic
     Dosage: 0.25 MICROGRAM, QD
     Route: 048
     Dates: end: 20230525
  33. ALFACALCIDOL [Concomitant]
     Active Substance: ALFACALCIDOL
     Indication: Focal segmental glomerulosclerosis
  34. PITAVASTATIN CALCIUM [Concomitant]
     Active Substance: PITAVASTATIN CALCIUM
     Indication: Dyslipidaemia
     Dosage: 1 MILLIGRAM, QD
     Route: 048
  35. BIXALOMER [Concomitant]
     Active Substance: BIXALOMER
     Indication: Hyperphosphataemia
     Dosage: 250 MILLIGRAM, QD
     Route: 048
     Dates: end: 20230615
  36. LEVOCARNITINE [Concomitant]
     Active Substance: LEVOCARNITINE
     Indication: Carnitine deficiency
     Dosage: 1000 MILLIGRAM, 3 TIMES/WK
     Route: 042
     Dates: end: 20240904
  37. UPACICALCET SODIUM HYDRATE [Concomitant]
     Active Substance: UPACICALCET SODIUM HYDRATE
     Indication: Hyperparathyroidism secondary
     Dosage: 25 MICROGRAM, 3 TIMES/WK
     Route: 042
     Dates: start: 20230403
  38. UPACICALCET SODIUM HYDRATE [Concomitant]
     Active Substance: UPACICALCET SODIUM HYDRATE
     Indication: Hyperparathyroidism secondary
  39. ROCALTROL [Concomitant]
     Active Substance: CALCITRIOL
     Indication: Glomerulonephritis chronic
     Dosage: 0.5 MICROGRAM, QWK
     Route: 042
     Dates: start: 20230526, end: 20230628
  40. ROCALTROL [Concomitant]
     Active Substance: CALCITRIOL
     Indication: Focal segmental glomerulosclerosis
     Dosage: 0.5 MICROGRAM, 2 TIMES/WK
     Route: 042
     Dates: start: 20230630, end: 20230807
  41. ROCALTROL [Concomitant]
     Active Substance: CALCITRIOL
     Indication: Hyperparathyroidism secondary
     Dosage: 0.5 MICROGRAM, 3 TIMES/WK
     Route: 042
     Dates: start: 20230809, end: 20230828
  42. ROCALTROL [Concomitant]
     Active Substance: CALCITRIOL
     Dosage: 0.5 MICROGRAM, QWK
     Route: 042
     Dates: start: 20230830, end: 20240226
  43. ROCALTROL [Concomitant]
     Active Substance: CALCITRIOL
     Dosage: 1 MICROGRAM, 2 TIMES/WK
     Route: 042
     Dates: start: 20230830, end: 20240226
  44. ROCALTROL [Concomitant]
     Active Substance: CALCITRIOL
     Dosage: 0.5 MICROGRAM, 3 TIMES/WK
     Route: 042
     Dates: start: 20240228, end: 20240424
  45. ROCALTROL [Concomitant]
     Active Substance: CALCITRIOL
     Dosage: 1 MICROGRAM, 2 TIMES/WK
     Route: 042
     Dates: start: 20240426

REACTIONS (2)
  - Shunt blood flow excessive [Recovered/Resolved]
  - Hyperparathyroidism secondary [Recovered/Resolved]

NARRATIVE: CASE EVENT DATE: 20230403
